FAERS Safety Report 6855936-9 (Version None)
Quarter: 2010Q3

REPORT INFORMATION
  Report Type: 
  Country: None (occurrence: None)
  Receive Date: 20100716
  Receipt Date: 20100716
  Transmission Date: 20110219
  Serious: No
  Sender: FDA-Public Use
  Company Number: None

PATIENT
  Age: 73 Year
  Sex: Female
  Weight: 39.9165 kg

DRUGS (1)
  1. CLINDAMYCIN [Suspect]
     Indication: TOOTH ABSCESS
     Dosage: 150 MG EVERY 6 HOURS PO
     Route: 048
     Dates: start: 20100420, end: 20100427

REACTIONS (2)
  - DERMATITIS ACNEIFORM [None]
  - ORAL PRURITUS [None]
